FAERS Safety Report 24227950 (Version 1)
Quarter: 2024Q3

REPORT INFORMATION
  Report Type: Spontaneous
  Country: BR (occurrence: BR)
  Receive Date: 20240820
  Receipt Date: 20240820
  Transmission Date: 20241016
  Serious: Yes (Hospitalization, Other)
  Sender: FRESENIUS KABI
  Company Number: BR-FreseniusKabi-FK202412525

PATIENT
  Age: 43 Year
  Sex: Male
  Weight: 103 kg

DRUGS (6)
  1. OXACILLIN SODIUM [Suspect]
     Active Substance: OXACILLIN SODIUM
     Indication: Antibiotic therapy
     Dosage: RECONSTITUTION IN DOUBLE DISTILLED WATER (5ML) AND DILUTION IN 0.9 PERCENT SODIUM CHLORIDE (50ML).
     Route: 042
     Dates: start: 20240809, end: 20240812
  2. OXACILLIN SODIUM [Suspect]
     Active Substance: OXACILLIN SODIUM
     Dosage: RECONSTITUTION IN DOUBLE DISTILLED WATER (5ML) AND DILUTION IN 0.9 PERCENT SODIUM CHLORIDE (50ML).
     Route: 042
     Dates: start: 20240809, end: 20240812
  3. OXACILLIN SODIUM [Suspect]
     Active Substance: OXACILLIN SODIUM
     Dosage: RECONSTITUTION IN DOUBLE DISTILLED WATER (5ML) AND DILUTION IN 0.9 PERCENT SODIUM CHLORIDE (50ML).
     Route: 042
     Dates: start: 20240809, end: 20240812
  4. CEFUROXIME [Concomitant]
     Active Substance: CEFUROXIME
     Indication: Product used for unknown indication
     Route: 042
  5. TYLENOL [Concomitant]
     Active Substance: ACETAMINOPHEN
     Indication: Product used for unknown indication
     Route: 048
     Dates: start: 20240810
  6. PANTOPRAZOLE [Concomitant]
     Active Substance: PANTOPRAZOLE
     Indication: Product used for unknown indication
     Route: 048
     Dates: start: 20240811

REACTIONS (1)
  - Anaphylactic shock [Recovered/Resolved]

NARRATIVE: CASE EVENT DATE: 20240811
